FAERS Safety Report 4427429-X (Version None)
Quarter: 2004Q3

REPORT INFORMATION
  Report Type: 
  Country: None (occurrence: None)
  Receive Date: 20040812
  Receipt Date: 20040729
  Transmission Date: 20050211
  Serious: No
  Sender: FDA-Public Use
  Company Number: 208165

PATIENT
  Sex: Female

DRUGS (3)
  1. RITUXAN [Suspect]
     Indication: NON-HODGKIN'S LYMPHOMA
     Dosage: INTRAVENOUS
     Route: 042
     Dates: end: 20030301
  2. FLUDARABINE PHOSPHATE [Concomitant]
  3. PREDNISONE [Concomitant]

REACTIONS (5)
  - TOOTH DISCOLOURATION [None]
  - TOOTH DISORDER [None]
  - TOOTH FRACTURE [None]
  - TOOTH LOSS [None]
  - WEIGHT DECREASED [None]
